FAERS Safety Report 15482943 (Version 3)
Quarter: 2019Q2

REPORT INFORMATION
  Report Type: Spontaneous
  Country: US (occurrence: US)
  Receive Date: 20181010
  Receipt Date: 20190513
  Transmission Date: 20190711
  Serious: No
  Sender: FDA-Public Use
  Company Number: US-PFIZER INC-2018406361

PATIENT
  Age: 75 Year
  Sex: Female
  Weight: 91.63 kg

DRUGS (1)
  1. GABAPENTIN. [Suspect]
     Active Substance: GABAPENTIN
     Indication: PAIN IN EXTREMITY
     Dosage: 10 MG, 1X/DAY
     Dates: start: 2018

REACTIONS (5)
  - Off label use [Unknown]
  - Hallucination [Recovered/Resolved]
  - Drug hypersensitivity [Unknown]
  - Feeling abnormal [Unknown]
  - Product use in unapproved indication [Unknown]

NARRATIVE: CASE EVENT DATE: 2018
